FAERS Safety Report 9702106 (Version 1)
Quarter: 2013Q4

REPORT INFORMATION
  Report Type: Report from Study
  Country: US (occurrence: US)
  Receive Date: 20131121
  Receipt Date: 20131121
  Transmission Date: 20140711
  Serious: Yes (Other)
  Sender: FDA-Public Use
  Company Number: US-ABBVIE-13P-163-1168624-00

PATIENT
  Sex: Female
  Weight: 54.48 kg

DRUGS (9)
  1. HUMIRA [Suspect]
     Indication: CROHN^S DISEASE
  2. HUMIRA [Suspect]
  3. HUMIRA [Suspect]
  4. REQUIP [Concomitant]
     Indication: RESTLESS LEGS SYNDROME
  5. NORTRIPTYLINE [Concomitant]
     Indication: DEPRESSION
  6. SAVELLA [Concomitant]
     Indication: FIBROMYALGIA
  7. LANSOPRAZOLE [Concomitant]
     Indication: GASTROOESOPHAGEAL REFLUX DISEASE
  8. KLONOPIN [Concomitant]
     Indication: PAIN
  9. ZOMIG [Concomitant]
     Indication: AMNESIA

REACTIONS (6)
  - Lyme disease [Recovered/Resolved]
  - Fatigue [Not Recovered/Not Resolved]
  - Sluggishness [Not Recovered/Not Resolved]
  - Skin cancer [Not Recovered/Not Resolved]
  - Vision blurred [Recovered/Resolved]
  - Headache [Recovered/Resolved]
